FAERS Safety Report 19402417 (Version 1)
Quarter: 2021Q2

REPORT INFORMATION
  Report Type: Spontaneous
  Country: CN (occurrence: CN)
  Receive Date: 20210610
  Receipt Date: 20210610
  Transmission Date: 20210717
  Serious: Yes (Death)
  Sender: FDA-Public Use
  Company Number: CN-SYNEX-T202102554

PATIENT
  Age: 65 Year
  Sex: Male

DRUGS (4)
  1. INOMAX [Suspect]
     Active Substance: NITRIC OXIDE
     Indication: PULMONARY HYPERTENSION
  2. INTERFERON [Concomitant]
     Active Substance: INTERFERON
     Indication: ANTIVIRAL TREATMENT
     Dosage: UNK
     Route: 065
  3. INOMAX [Suspect]
     Active Substance: NITRIC OXIDE
     Indication: COVID-19
     Dosage: INHALATION, 10 ? 20 PPM, FOR 9 DAYS
     Route: 055
  4. LOPINAVIR [Concomitant]
     Active Substance: LOPINAVIR
     Indication: ANTIVIRAL TREATMENT
     Dosage: UNK
     Route: 065

REACTIONS (4)
  - Product use issue [Unknown]
  - Thoracic haemorrhage [Fatal]
  - Multiple organ dysfunction syndrome [Fatal]
  - Product use in unapproved indication [Unknown]
